FAERS Safety Report 14591901 (Version 1)
Quarter: 2018Q1

REPORT INFORMATION
  Report Type: Spontaneous
  Country: US (occurrence: US)
  Receive Date: 20180302
  Receipt Date: 20180302
  Transmission Date: 20180509
  Serious: Yes (Other)
  Sender: FDA-Public Use
  Company Number: US-SA-2018SA048651

PATIENT
  Age: 70 Year
  Sex: Male

DRUGS (1)
  1. ASPERCREME WITH LIDOCAINE [Suspect]
     Active Substance: LIDOCAINE
     Route: 051
     Dates: start: 20171228

REACTIONS (2)
  - Hypoaesthesia [Recovering/Resolving]
  - Burns second degree [Recovering/Resolving]

NARRATIVE: CASE EVENT DATE: 20171228
